FAERS Safety Report 9899376 (Version 1)
Quarter: 2014Q1

REPORT INFORMATION
  Report Type: Report from Study
  Country: NL (occurrence: NL)
  Receive Date: 20140214
  Receipt Date: 20140214
  Transmission Date: 20141002
  Serious: Yes (Hospitalization)
  Sender: FDA-Public Use
  Company Number: NL-ABBVIE-14P-114-1201942-00

PATIENT
  Sex: Female
  Weight: 63 kg

DRUGS (2)
  1. LUCRIN [Suspect]
     Indication: ENDOMETRIOSIS
     Route: 058
     Dates: start: 20121210, end: 201304
  2. VITAMIN B12 [Concomitant]
     Indication: PRODUCT USED FOR UNKNOWN INDICATION

REACTIONS (3)
  - Haematochezia [Recovered/Resolved]
  - Rectal haemorrhage [Recovered/Resolved]
  - Abdominal neoplasm [Recovered/Resolved]
